FAERS Safety Report 10503220 (Version 2)
Quarter: 2015Q1

REPORT INFORMATION
  Report Type: Spontaneous
  Country: AR (occurrence: AR)
  Receive Date: 20141008
  Receipt Date: 20150206
  Transmission Date: 20150720
  Serious: Yes (Hospitalization, Other)
  Sender: FDA-Public Use
  Company Number: AR-AMGEN-ARGSP2014076963

PATIENT
  Age: 60 Year
  Sex: Female

DRUGS (1)
  1. ENBREL [Suspect]
     Active Substance: ETANERCEPT
     Indication: RHEUMATOID ARTHRITIS
     Dosage: 50 MG, WEEKLY
     Route: 065
     Dates: start: 20060224

REACTIONS (5)
  - Pyrexia [Recovered/Resolved]
  - Type 2 diabetes mellitus [Unknown]
  - Syncope [Recovered/Resolved]
  - Kidney infection [Recovered/Resolved]
  - Infected bites [Recovered/Resolved]

NARRATIVE: CASE EVENT DATE: 2013
